FAERS Safety Report 13407368 (Version 14)
Quarter: 2020Q1

REPORT INFORMATION
  Report Type: Report from Study
  Country: JP (occurrence: JP)
  Receive Date: 20170405
  Receipt Date: 20200126
  Transmission Date: 20200409
  Serious: Yes (Hospitalization, Other)
  Sender: FDA-Public Use
  Company Number: JP-AMGEN-JPNCT2017035369

PATIENT
  Age: 69 Year
  Sex: Female
  Weight: 50 kg

DRUGS (17)
  1. LEVOFOLINATE [CALCIUM LEVOFOLINATE] [Concomitant]
     Active Substance: LEVOLEUCOVORIN CALCIUM
     Dosage: 275 MILLIGRAM, Q2WK
     Route: 041
     Dates: start: 20170412, end: 20170502
  2. FAMOTIDINE. [Concomitant]
     Active Substance: FAMOTIDINE
     Indication: PROPHYLAXIS
     Dosage: 10 MILLIGRAM, BID
     Route: 048
     Dates: start: 20161230
  3. LOXOPROFEN NA [Concomitant]
     Active Substance: LOXOPROFEN SODIUM
     Indication: ANALGESIC THERAPY
     Dosage: 1 UNK, (1 DOSAGE FORM)
     Route: 048
     Dates: start: 20170131
  4. OXALIPLATIN. [Suspect]
     Active Substance: OXALIPLATIN
     Indication: COLON CANCER
     Dosage: 110 MILLIGRAM, Q2WK
     Route: 041
     Dates: start: 20170131, end: 20170228
  5. OXALIPLATIN. [Suspect]
     Active Substance: OXALIPLATIN
     Dosage: 110 MILLIGRAM, Q2WK
     Route: 041
     Dates: start: 20170412, end: 20170502
  6. LEVOFOLINATE [CALCIUM LEVOFOLINATE] [Concomitant]
     Active Substance: LEVOLEUCOVORIN CALCIUM
     Indication: COLON CANCER
     Dosage: 275 MILLIGRAM, Q2WK
     Route: 041
     Dates: start: 20160131, end: 20170228
  7. REBAMIPIDE [Concomitant]
     Active Substance: REBAMIPIDE
     Dosage: 1 UNK, (1 DOSAGE FORM)
     Route: 048
     Dates: start: 20170426
  8. HIRUDOID [Concomitant]
     Active Substance: GLYCOSAMINOGLYCANS
     Indication: DRY SKIN PROPHYLAXIS
     Dosage: UNK
     Route: 062
     Dates: start: 20170131
  9. 5-FU [FLUOROURACIL] [Suspect]
     Active Substance: FLUOROURACIL
     Indication: COLON CANCER
     Dosage: 550 MILLIGRAM, Q2WK
     Route: 040
     Dates: start: 20170131, end: 20170228
  10. 5-FU [FLUOROURACIL] [Suspect]
     Active Substance: FLUOROURACIL
     Dosage: 200 MILLIGRAM/SQ. METER, Q2WK
     Route: 040
     Dates: start: 20170412, end: 20170502
  11. 5-FU [FLUOROURACIL] [Suspect]
     Active Substance: FLUOROURACIL
     Dosage: 2000 MILLIGRAM/SQ. METER, Q2WK
     Route: 041
     Dates: start: 20170412, end: 20170502
  12. VANCOMYCIN [Suspect]
     Active Substance: VANCOMYCIN
     Indication: VASCULAR DEVICE INFECTION
     Dosage: UNK
     Route: 065
     Dates: start: 20170329, end: 20170411
  13. MINOCYCLINE HYDROCHLORIDE. [Concomitant]
     Active Substance: MINOCYCLINE HYDROCHLORIDE
     Indication: PROPHYLAXIS
     Dosage: 100 MILLIGRAM, BID
     Route: 048
     Dates: start: 20170131, end: 20170710
  14. 5-FU [FLUOROURACIL] [Suspect]
     Active Substance: FLUOROURACIL
     Dosage: 3350 MILLIGRAM, Q2WK
     Route: 041
     Dates: start: 20170131, end: 20170228
  15. PANITUMUMAB [Suspect]
     Active Substance: PANITUMUMAB
     Indication: COLON CANCER
     Dosage: 300 MILLIGRAM, Q2WK
     Route: 041
     Dates: start: 20170131, end: 20170228
  16. PANITUMUMAB [Suspect]
     Active Substance: PANITUMUMAB
     Dosage: 4.8 MILLIGRAM/KILOGRAM, Q2WK
     Route: 041
     Dates: start: 20170412, end: 20170502
  17. REBAMIPIDE [Concomitant]
     Active Substance: REBAMIPIDE
     Indication: ANALGESIC THERAPY
     Dosage: 1 UNK, (1 DOSAGE FORM)
     Route: 048
     Dates: start: 20170131, end: 20170329

REACTIONS (17)
  - Malaise [Recovered/Resolved]
  - Hypothyroidism [Recovered/Resolved]
  - Paronychia [Recovered/Resolved]
  - Peripheral sensory neuropathy [Recovered/Resolved]
  - Dyspnoea [Recovering/Resolving]
  - Thrombophlebitis [Recovered/Resolved]
  - Malaise [Recovered/Resolved]
  - Taste disorder [Recovered/Resolved]
  - Catheter site pain [Recovered/Resolved]
  - Skin hyperpigmentation [Recovered/Resolved]
  - Palmar-plantar erythrodysaesthesia syndrome [Recovered/Resolved]
  - Device related infection [Recovered/Resolved]
  - Renal impairment [Recovered/Resolved]
  - Dry skin [Recovered/Resolved]
  - Stomatitis [Recovered/Resolved]
  - Dermatitis acneiform [Recovered/Resolved]
  - Diarrhoea [Recovered/Resolved]

NARRATIVE: CASE EVENT DATE: 20170328
